FAERS Safety Report 6571195-9 (Version None)
Quarter: 2010Q1

REPORT INFORMATION
  Report Type: 
  Country: None (occurrence: None)
  Receive Date: 20100129
  Receipt Date: 20100113
  Transmission Date: 20100710
  Serious: Yes (Death, Hospitalization)
  Sender: FDA-Public Use
  Company Number: 2009AC000526

PATIENT
  Age: 61 Year
  Sex: Female

DRUGS (58)
  1. DIGOXIN [Suspect]
     Dosage: 125 MCG;QD;PO
     Route: 048
  2. PROZAC [Concomitant]
  3. K-DUR [Concomitant]
  4. LASIX [Concomitant]
  5. NORVASC [Concomitant]
  6. CARDURA [Concomitant]
  7. ANTARA (MICRONIZED) [Concomitant]
  8. COREG [Concomitant]
  9. ZYVOX [Concomitant]
  10. BENICAR [Concomitant]
  11. BACTROBAN [Concomitant]
  12. PLAVIX [Concomitant]
  13. MONOPRIL [Concomitant]
  14. NASONEX [Concomitant]
  15. PRAVACHOL [Concomitant]
  16. KLOR-CON [Concomitant]
  17. PREDNISONE [Concomitant]
  18. AMBIEN [Concomitant]
  19. FLUOXETINE [Concomitant]
  20. PRAVASTATIN [Concomitant]
  21. AVELOX [Concomitant]
  22. DOXAZOSIN MESYLATE [Concomitant]
  23. ZETIA [Concomitant]
  24. AMLODIPINE [Concomitant]
  25. TRIMOX [Concomitant]
  26. ENALAPRIL MALEATE [Concomitant]
  27. FOLIC ACID [Concomitant]
  28. ZOLOFT [Concomitant]
  29. CALCIUM [Concomitant]
  30. HUMALOG [Concomitant]
  31. *GLIPIZIDE [Concomitant]
  32. LOPID [Concomitant]
  33. VERELAN [Concomitant]
  34. FOSINOPRIL SODIUM [Concomitant]
  35. DYNACIRC [Concomitant]
  36. PRAVACHOL [Concomitant]
  37. CARDURA [Concomitant]
  38. CALCIUM [Concomitant]
  39. VITAMIN D [Concomitant]
  40. VITAMIN C [Concomitant]
  41. PROZAC [Concomitant]
  42. BENICAR [Concomitant]
  43. NORVASC [Concomitant]
  44. COREG [Concomitant]
  45. ASPIRIN [Concomitant]
  46. ANTARA (MICRONIZED) [Concomitant]
  47. ZETIA [Concomitant]
  48. NASONEX [Concomitant]
  49. FOLTX [Concomitant]
  50. OMACOR [Concomitant]
  51. ZYRTEC [Concomitant]
  52. MIACALCIN [Concomitant]
  53. PROZAC [Concomitant]
  54. PRAVACHOL [Concomitant]
  55. LISPRO [Concomitant]
  56. ECOTRIN [Concomitant]
  57. PLAVIX [Concomitant]
  58. MONOPRIL [Concomitant]

REACTIONS (24)
  - ABDOMINAL PAIN [None]
  - ADNEXA UTERI CYST [None]
  - ARTERIOSCLEROSIS [None]
  - ASTHMA [None]
  - BRADYCARDIA [None]
  - CARDIAC DISORDER [None]
  - CARDIAC FAILURE CONGESTIVE [None]
  - CONTRAST MEDIA REACTION [None]
  - CORONARY ARTERY DISEASE [None]
  - CORONARY ARTERY OCCLUSION [None]
  - DEPRESSION [None]
  - DIZZINESS [None]
  - FATIGUE [None]
  - HYPERTENSIVE HEART DISEASE [None]
  - HYPONATRAEMIA [None]
  - HYPOTENSION [None]
  - NAUSEA [None]
  - NEPHROPATHY [None]
  - OEDEMA [None]
  - POLYDIPSIA [None]
  - RENAL FAILURE CHRONIC [None]
  - SUBCUTANEOUS ABSCESS [None]
  - VOMITING [None]
  - WOUND INFECTION STAPHYLOCOCCAL [None]
